FAERS Safety Report 20770556 (Version 5)
Quarter: 2023Q4

REPORT INFORMATION
  Report Type: Spontaneous
  Country: US (occurrence: US)
  Receive Date: 20220429
  Receipt Date: 20231220
  Transmission Date: 20240110
  Serious: No
  Sender: FDA-Public Use
  Company Number: US-PFIZER INC-202200035942

PATIENT
  Age: 72 Year
  Sex: Male

DRUGS (4)
  1. XELJANZ [Suspect]
     Active Substance: TOFACITINIB CITRATE
     Dosage: 10 MG, 2X/DAY
  2. XELJANZ [Suspect]
     Active Substance: TOFACITINIB CITRATE
     Dosage: 5 MG, 2X/DAY
  3. XELJANZ [Suspect]
     Active Substance: TOFACITINIB CITRATE
     Dosage: 10 MG, 2X/DAY
  4. ELIQUIS [Suspect]
     Active Substance: APIXABAN
     Indication: Anticoagulant therapy

REACTIONS (3)
  - Blood cholesterol abnormal [Unknown]
  - Blood pressure abnormal [Unknown]
  - Condition aggravated [Unknown]
